FAERS Safety Report 5500233-7 (Version None)
Quarter: 2007Q4

REPORT INFORMATION
  Report Type: 
  Country: None (occurrence: None)
  Receive Date: 20071029
  Receipt Date: 20071026
  Transmission Date: 20080405
  Serious: Yes (Other)
  Sender: FDA-Public Use
  Company Number: FR-JNJFOC-20070700903

PATIENT
  Sex: Female
  Weight: 60 kg

DRUGS (4)
  1. RISPERDAL [Suspect]
     Indication: DRUG USE FOR UNKNOWN INDICATION
     Route: 048
  2. KEPPRA [Concomitant]
     Indication: EPILEPSY
     Route: 048
  3. TEMODAL [Concomitant]
     Indication: CHEMOTHERAPY
     Route: 048
  4. SOLUPRED [Concomitant]
     Indication: OEDEMA
     Route: 048

REACTIONS (5)
  - ANXIETY [None]
  - PARKINSONISM [None]
  - REBOUND EFFECT [None]
  - RESTLESSNESS [None]
  - TACHYPNOEA [None]
